FAERS Safety Report 4394998-8 (Version None)
Quarter: 2004Q3

REPORT INFORMATION
  Report Type: 
  Country: None (occurrence: None)
  Receive Date: 20040712
  Receipt Date: 20040621
  Transmission Date: 20050211
  Serious: Yes (Other)
  Sender: FDA-Public Use
  Company Number: PHEH2004US06697

PATIENT
  Age: 63 Year
  Sex: Male

DRUGS (6)
  1. ZELNORM [Suspect]
     Indication: CONSTIPATION
     Dosage: 6 MG, BID
     Route: 048
     Dates: start: 20040605, end: 20040619
  2. METHADONE HCL [Concomitant]
     Indication: PAIN
  3. NEURONTIN [Concomitant]
  4. PREVACID [Concomitant]
  5. XANAX [Concomitant]
  6. CELEBREX [Concomitant]

REACTIONS (3)
  - CONSTIPATION [None]
  - DIARRHOEA [None]
  - DIZZINESS [None]
